FAERS Safety Report 9683437 (Version 2)
Quarter: 2013Q4

REPORT INFORMATION
  Report Type: Report from Study
  Country: US (occurrence: US)
  Receive Date: 20131112
  Receipt Date: 20131112
  Transmission Date: 20140711
  Serious: Yes (Death)
  Sender: FDA-Public Use
  Company Number: US-PFIZER INC-2013319377

PATIENT
  Age: 76 Year
  Sex: Female

DRUGS (3)
  1. HEPARIN SODIUM [Suspect]
     Indication: THROMBOSIS PROPHYLAXIS
     Dosage: 40 IU/KG, UNK
     Route: 013
  2. ASPIRIN [Concomitant]
     Dosage: 325 MG, UNK
  3. CLOPIDOGREL [Concomitant]
     Dosage: 600 MG, UNK

REACTIONS (2)
  - Cardiac death [Fatal]
  - Coronary artery occlusion [Fatal]
